FAERS Safety Report 8027092-5 (Version None)
Quarter: 2012Q1

REPORT INFORMATION
  Report Type: 
  Country: None (occurrence: None)
  Receive Date: 20120103
  Receipt Date: 20111219
  Transmission Date: 20120608
  Serious: Yes (Life-Threatening, Hospitalization)
  Sender: FDA-Public Use
  Company Number: 2011MA017909

PATIENT
  Age: 60 Year
  Sex: Male

DRUGS (12)
  1. SODIUM BICARBONATE [Concomitant]
  2. SIMVASTATIN [Concomitant]
  3. QUININE SULFATE [Concomitant]
  4. CODEINE SULFATE [Concomitant]
  5. NAPROXEN [Suspect]
     Indication: PAIN
     Dosage: 250 MG;BID;PO
     Route: 048
  6. RAMIPRIL [Concomitant]
  7. SILDENAFIL [Concomitant]
  8. PREGABALIN [Concomitant]
  9. PIOGLITAZONE [Concomitant]
  10. METFORMIN HCL [Concomitant]
  11. DICLOFENAC SODIUM AND MISOPROSTOL [Suspect]
     Indication: PAIN
     Dosage: 250 MG;BID;PO
     Route: 048
  12. GLICLAZIDE [Concomitant]

REACTIONS (5)
  - HYPOTENSION [None]
  - DUODENAL PERFORATION [None]
  - DIARRHOEA [None]
  - VOMITING [None]
  - UNEVALUABLE EVENT [None]
